FAERS Safety Report 4700967-8 (Version None)
Quarter: 2005Q2

REPORT INFORMATION
  Report Type: 
  Country: None (occurrence: None)
  Receive Date: 20050624
  Receipt Date: 20050615
  Transmission Date: 20051028
  Serious: Yes (Other)
  Sender: FDA-Public Use
  Company Number: B0384487A

PATIENT
  Sex: 0

DRUGS (1)
  1. ZYBAN [Suspect]
     Indication: SMOKING CESSATION THERAPY
     Dosage: 150 MG / PER DAY / ORAL
     Route: 048

REACTIONS (1)
  - DRUG HYPERSENSITIVITY [None]
